FAERS Safety Report 9786584 (Version 1)
Quarter: 2013Q4

REPORT INFORMATION
  Report Type: Spontaneous
  Country: IT (occurrence: IT)
  Receive Date: 20131227
  Receipt Date: 20131227
  Transmission Date: 20140711
  Serious: Yes (Hospitalization)
  Sender: FDA-Public Use
  Company Number: PHHY2013IT150490

PATIENT
  Age: 93 Year
  Sex: Female

DRUGS (10)
  1. BISOPROLOL [Suspect]
     Indication: HYPERTENSION
     Dosage: 3.75 M, QD
     Route: 048
     Dates: start: 20131128, end: 20131128
  2. CORDARONE [Suspect]
     Indication: ATRIAL FIBRILLATION
     Dosage: 200 MG, QD
     Route: 048
     Dates: start: 20130328, end: 20131128
  3. TALOFEN [Concomitant]
     Dosage: 10 GTT, UNK
     Route: 048
  4. LASIX [Concomitant]
     Dosage: 3 DF, QW
  5. CITALOPRAM [Concomitant]
     Dosage: 10 MG, UNK
     Route: 048
  6. QUETIAPINE [Concomitant]
     Dosage: 50 MG, UNK
     Route: 048
  7. TICLOPIDINE [Concomitant]
     Dosage: 500 MG, UNK
     Route: 048
  8. PERINDOPRIL [Concomitant]
     Indication: HYPERTENSION
     Dosage: 5 MG, UNK
     Route: 048
  9. BROMAZEPAM [Concomitant]
  10. ATORVASTATIN [Concomitant]
     Dosage: 10 MG, UNK
     Route: 048

REACTIONS (4)
  - Sopor [Recovering/Resolving]
  - Dyspnoea [Recovering/Resolving]
  - Long QT syndrome [Recovering/Resolving]
  - Bradycardia [Recovering/Resolving]
